FAERS Safety Report 9206245 (Version 3)
Quarter: 2013Q2

REPORT INFORMATION
  Report Type: Spontaneous
  Country: US (occurrence: US)
  Receive Date: 20130403
  Receipt Date: 20130517
  Transmission Date: 20140414
  Serious: No
  Sender: FDA-Public Use
  Company Number: US-PFIZER INC-2012293095

PATIENT
  Age: 57 Year
  Sex: Female
  Weight: 81.18 kg

DRUGS (11)
  1. EFFEXOR XR [Suspect]
     Indication: OCCIPITAL NEURALGIA
     Dosage: 37.5 MG, 1X/DAY
     Route: 048
  2. EFFEXOR XR [Suspect]
     Indication: TORTICOLLIS
  3. DIOVAN HCT [Concomitant]
     Dosage: 1 DF, 1X/DAY
     Route: 048
  4. VIVELLE-DOT [Concomitant]
     Dosage: UNK, 1 PATCH ONTO THE SKIN ONCE A WEEK
  5. VALSARTAN [Concomitant]
     Dosage: 1 DF, 1X/DAY
     Route: 048
  6. VOLTAREN [Concomitant]
     Indication: PAIN
     Dosage: UNK, 4 TIMES DAILY AS NEEDED
     Route: 061
  7. NEXIUM [Concomitant]
     Dosage: 40 MG, 1 CAP EVERY MORNING
     Route: 048
  8. ZETIA [Concomitant]
     Dosage: 10 MG, DAILY
     Route: 048
  9. TOPAMAX [Concomitant]
     Dosage: 75 MG, 1X/DAY
     Route: 048
  10. ASPIRIN (E.C.) [Concomitant]
     Dosage: 81 MG, 1X/DAY
     Route: 048
  11. OCEAN [Concomitant]
     Dosage: UNK, 1 SPRAY EACH NOSTRIL AS NEEDED

REACTIONS (7)
  - Nasopharyngitis [Recovering/Resolving]
  - Sinusitis [Recovering/Resolving]
  - Sneezing [Recovering/Resolving]
  - Off label use [Not Recovered/Not Resolved]
  - Abdominal discomfort [Unknown]
  - Folliculitis [Unknown]
  - Anaemia [Unknown]
